FAERS Safety Report 8984222 (Version 3)
Quarter: 2013Q1

REPORT INFORMATION
  Report Type: Spontaneous
  Country: TR (occurrence: TR)
  Receive Date: 20121226
  Receipt Date: 20130227
  Transmission Date: 20140127
  Serious: Yes (Other)
  Sender: FDA-Public Use
  Company Number: TR-PFIZER INC-2012325746

PATIENT
  Age: 77 Year
  Sex: 0

DRUGS (4)
  1. LYRICA [Suspect]
  2. KARVEZIDE [Concomitant]
     Dosage: 300 MG, UNK
  3. MONOKET [Concomitant]
  4. ECOPIRIN [Concomitant]

REACTIONS (3)
  - Convulsion [Unknown]
  - Electrocardiogram ST segment depression [Unknown]
  - Arrhythmia [Unknown]
